FAERS Safety Report 8607836-1 (Version None)
Quarter: 2012Q3

REPORT INFORMATION
  Report Type: 
  Country: None (occurrence: None)
  Receive Date: 20120821
  Receipt Date: 20120807
  Transmission Date: 20120928
  Serious: Yes (Other)
  Sender: FDA-Public Use
  Company Number: FR-MYLANLABS-2012S1016337

PATIENT
  Age: 61 Year
  Sex: Female

DRUGS (3)
  1. AZATHIOPRINE [Suspect]
     Indication: TAKAYASU'S ARTERITIS
     Dosage: 125MG DAILY
     Route: 065
  2. PREDNISONE [Concomitant]
     Indication: TAKAYASU'S ARTERITIS
     Dosage: 15MG DAILY
     Route: 065
  3. INFLIXIMAB [Suspect]
     Indication: TAKAYASU'S ARTERITIS
     Dosage: 5 MG/KG
     Route: 065

REACTIONS (2)
  - CARDIAC FAILURE ACUTE [None]
  - HEPATIC ENZYME INCREASED [None]
